FAERS Safety Report 4505711-5 (Version None)
Quarter: 2004Q4

REPORT INFORMATION
  Report Type: 
  Country: None (occurrence: None)
  Receive Date: 20041119
  Receipt Date: 20041116
  Transmission Date: 20050328
  Serious: Yes (Death, Life-Threatening)
  Sender: FDA-Public Use
  Company Number: US-MERCK-0411USA02694

PATIENT
  Age: 76 Year
  Sex: Female

DRUGS (2)
  1. VIOXX [Suspect]
     Indication: ARTHRITIS
     Route: 048
     Dates: start: 20020203
  2. CELEBREX [Concomitant]
     Route: 065
     Dates: end: 20020101

REACTIONS (1)
  - CARDIAC FAILURE [None]
